FAERS Safety Report 13467036 (Version 3)
Quarter: 2017Q2

REPORT INFORMATION
  Report Type: Spontaneous
  Country: US (occurrence: US)
  Receive Date: 20170421
  Receipt Date: 20170530
  Transmission Date: 20170830
  Serious: No
  Sender: FDA-Public Use
  Company Number: US-BAUSCH-BL-2017-010308

PATIENT
  Age: 64 Year
  Sex: Female
  Weight: 53.12 kg

DRUGS (3)
  1. XIFAXAN [Suspect]
     Active Substance: RIFAXIMIN
     Indication: DIARRHOEA
     Route: 048
     Dates: start: 20170221
  2. XIFAXAN [Suspect]
     Active Substance: RIFAXIMIN
     Indication: ABDOMINAL DISTENSION
     Route: 048
     Dates: start: 2017
  3. XIFAXAN [Suspect]
     Active Substance: RIFAXIMIN
     Indication: SHORT-BOWEL SYNDROME
     Route: 048
     Dates: start: 20170313

REACTIONS (3)
  - Drug dose omission [Unknown]
  - Off label use [Not Recovered/Not Resolved]
  - Diarrhoea [Recovering/Resolving]

NARRATIVE: CASE EVENT DATE: 20170221
